FAERS Safety Report 5452671-9 (Version None)
Quarter: 2007Q3

REPORT INFORMATION
  Report Type: 
  Country: None (occurrence: None)
  Receive Date: 20070914
  Receipt Date: 20070911
  Transmission Date: 20080115
  Serious: Yes (Hospitalization, Other)
  Sender: FDA-Public Use
  Company Number: AU-AVENTIS-200717942GDDC

PATIENT
  Age: 78 Year
  Sex: Male

DRUGS (19)
  1. LANTUS [Suspect]
     Route: 058
     Dates: start: 20061202
  2. AUTOPEN INSULIN INJECTION PEN [Suspect]
     Route: 058
  3. NOVORAPID [Concomitant]
     Route: 058
  4. CALTRATE                           /00108001/ [Concomitant]
     Route: 048
  5. CRANBERRY [Concomitant]
     Dosage: DOSE QUANTITY: 1
     Route: 048
  6. FOLIC ACID [Concomitant]
     Route: 048
  7. GLUCAGON [Concomitant]
  8. HAMILTON SKIN [Concomitant]
     Route: 061
  9. LIPITOR [Concomitant]
     Route: 048
  10. MICARDIS [Concomitant]
     Route: 048
  11. PANADEINE                          /00116401/ [Concomitant]
     Dosage: DOSE: 0.5 - 1
     Route: 048
  12. PANAMAX [Concomitant]
     Dosage: DOSE QUANTITY: 2
     Route: 048
  13. PLAVIX [Concomitant]
  14. SERETIDE ACCUHALER [Concomitant]
     Dosage: DOSE QUANTITY: 1
     Route: 055
  15. SALT [Concomitant]
     Route: 048
  16. SOLPRIN                            /00002702/ [Concomitant]
     Dosage: DOSE QUANTITY: 0.5
     Route: 048
  17. PANTOPRAZOLE SODIUM [Concomitant]
     Route: 048
  18. SPIRIVA [Concomitant]
     Route: 048
  19. TRANSDERM                          /00003201/ [Concomitant]
     Route: 061

REACTIONS (2)
  - ANGINA PECTORIS [None]
  - MYOCARDIAL INFARCTION [None]
